FAERS Safety Report 20877731 (Version 1)
Quarter: 2022Q2

REPORT INFORMATION
  Report Type: Spontaneous
  Country: US (occurrence: None)
  Receive Date: 20220526
  Receipt Date: 20220526
  Transmission Date: 20220720
  Serious: No
  Sender: FDA-Public Use
  Company Number: None

PATIENT
  Age: 60 Year
  Sex: Female
  Weight: 79.02 kg

DRUGS (4)
  1. GLEOSTINE [Suspect]
     Active Substance: LOMUSTINE
     Indication: Brain neoplasm malignant
     Dosage: FREQUENCY : DAILY;?
     Route: 048
     Dates: start: 20211125
  2. KEPPRA [Concomitant]
  3. PROCHLORPERAZINE [Concomitant]
  4. ZOLOFT [Concomitant]

REACTIONS (1)
  - Thrombocytopenia [None]
